FAERS Safety Report 4348897-8 (Version None)
Quarter: 2004Q1

REPORT INFORMATION
  Report Type: 
  Country: None (occurrence: None)
  Receive Date: 20040325
  Receipt Date: 20040226
  Transmission Date: 20041129
  Serious: No
  Sender: FDA-Public Use
  Company Number: USA031152134

PATIENT
  Age: 77 Year
  Sex: Female

DRUGS (3)
  1. FORTEO [Suspect]
     Indication: OSTEOPOROSIS
     Dosage: 20 UG/DAILY
     Dates: start: 20031107
  2. ZANTAC [Concomitant]
  3. CALCIUM [Concomitant]

REACTIONS (9)
  - ARTHRALGIA [None]
  - BLOOD CALCIUM INCREASED [None]
  - FEELING ABNORMAL [None]
  - FLATULENCE [None]
  - FREQUENT BOWEL MOVEMENTS [None]
  - IRRITABLE BOWEL SYNDROME [None]
  - LIMB DISCOMFORT [None]
  - PAIN [None]
  - PAIN IN EXTREMITY [None]
